FAERS Safety Report 23795034 (Version 3)
Quarter: 2024Q2

REPORT INFORMATION
  Report Type: Report from Study
  Country: CA (occurrence: CA)
  Receive Date: 20240429
  Receipt Date: 20240513
  Transmission Date: 20240716
  Serious: Yes (Other)
  Sender: FDA-Public Use
  Company Number: CA-GLAXOSMITHKLINE-CA2024026963

PATIENT

DRUGS (4)
  1. MEPOLIZUMAB [Suspect]
     Active Substance: MEPOLIZUMAB
     Indication: Asthma
     Dosage: 100 MG, Q4W
     Route: 058
     Dates: start: 20240228, end: 20240327
  2. SYMBICORT [Concomitant]
     Active Substance: BUDESONIDE\FORMOTEROL FUMARATE DIHYDRATE
     Indication: Product used for unknown indication
     Dosage: UNK UNK, QID, 2
  3. SPIRIVA [Concomitant]
     Active Substance: TIOTROPIUM BROMIDE MONOHYDRATE
     Indication: Product used for unknown indication
     Dosage: UNK
  4. BRICANYL [Concomitant]
     Active Substance: TERBUTALINE SULFATE
     Indication: Product used for unknown indication
     Dosage: UNK

REACTIONS (27)
  - Pulmonary embolism [Unknown]
  - Dizziness [Unknown]
  - Fatigue [Not Recovered/Not Resolved]
  - Feeling drunk [Unknown]
  - Peripheral swelling [Not Recovered/Not Resolved]
  - Swelling [Not Recovered/Not Resolved]
  - Fluid retention [Recovered/Resolved]
  - Pain [Not Recovered/Not Resolved]
  - Movement disorder [Not Recovered/Not Resolved]
  - Dyspnoea [Not Recovered/Not Resolved]
  - Eczema eyelids [Not Recovered/Not Resolved]
  - Condition aggravated [Unknown]
  - Headache [Unknown]
  - Feeling abnormal [Unknown]
  - Swelling face [Not Recovered/Not Resolved]
  - Hypoaesthesia [Unknown]
  - Weight increased [Unknown]
  - Generalised oedema [Recovered/Resolved]
  - Face oedema [Recovered/Resolved]
  - Vulval ulceration [Recovering/Resolving]
  - Bone pain [Recovered/Resolved]
  - Vulval disorder [Unknown]
  - Oxygen saturation decreased [Unknown]
  - Asthenia [Unknown]
  - Pulmonary pain [Not Recovered/Not Resolved]
  - Oxygen saturation abnormal [Unknown]
  - Oedema [Unknown]

NARRATIVE: CASE EVENT DATE: 20240228
